FAERS Safety Report 9555040 (Version 1)
Quarter: 2013Q3

REPORT INFORMATION
  Report Type: Spontaneous
  Country: US (occurrence: None)
  Receive Date: 20130903
  Receipt Date: 20130903
  Transmission Date: 20140515
  Serious: Yes (Hospitalization, Other)
  Sender: FDA-Public Use
  Company Number: 386529USA

PATIENT
  Sex: Female

DRUGS (1)
  1. ORAP [Suspect]
     Dates: end: 200907

REACTIONS (4)
  - Heart rate increased [None]
  - Blood pressure abnormal [None]
  - Chest pain [None]
  - Dizziness [None]
